FAERS Safety Report 18506644 (Version 2)
Quarter: 2020Q4

REPORT INFORMATION
  Report Type: Spontaneous
  Country: US (occurrence: US)
  Receive Date: 20201116
  Receipt Date: 20201125
  Transmission Date: 20210114
  Serious: Yes (Other)
  Sender: FDA-Public Use
  Company Number: US-PFIZER INC-2020447076

PATIENT
  Age: 75 Year
  Sex: Female
  Weight: 62.6 kg

DRUGS (2)
  1. LEFETAMINE [Concomitant]
     Active Substance: LEFETAMINE HYDROCHLORIDE
     Indication: RHEUMATOID ARTHRITIS
     Dosage: 20 MG, 1X/DAY
     Route: 048
     Dates: start: 20181129
  2. XELJANZ XR [Suspect]
     Active Substance: TOFACITINIB CITRATE
     Indication: RHEUMATOID ARTHRITIS
     Dosage: 11 MG, 1X/DAY
     Route: 048
     Dates: start: 20180305

REACTIONS (2)
  - Intentional product use issue [Unknown]
  - Dysuria [Unknown]
